FAERS Safety Report 23417382 (Version 1)
Quarter: 2024Q1

REPORT INFORMATION
  Report Type: Report from Study
  Country: ZA (occurrence: ZA)
  Receive Date: 20240118
  Receipt Date: 20240118
  Transmission Date: 20240410
  Serious: Yes (Other)
  Sender: FDA-Public Use
  Company Number: ZA-ABBVIE-5590487

PATIENT
  Age: 48 Year
  Sex: Female

DRUGS (2)
  1. OZURDEX [Suspect]
     Active Substance: DEXAMETHASONE
     Indication: Diabetic retinal oedema
     Dosage: TIME INTERVAL: AS NECESSARY: EVERY 4 - 6 MONTHS
     Route: 050
     Dates: start: 20220701
  2. OZURDEX [Suspect]
     Active Substance: DEXAMETHASONE
     Indication: Uveitis

REACTIONS (2)
  - Diabetic retinal oedema [Unknown]
  - Visual impairment [Unknown]

NARRATIVE: CASE EVENT DATE: 20240115
